FAERS Safety Report 6494923-X (Version None)
Quarter: 2009Q4

REPORT INFORMATION
  Report Type: 
  Country: None (occurrence: None)
  Receive Date: 20091214
  Receipt Date: 20090409
  Transmission Date: 20100525
  Serious: No
  Sender: FDA-Public Use
  Company Number: US-BRISTOL-MYERS SQUIBB COMPANY-14581367

PATIENT
  Age: 41 Year
  Sex: Female
  Weight: 73 kg

DRUGS (3)
  1. ABILIFY [Suspect]
     Indication: MAJOR DEPRESSION
     Dosage: DURATION OF THERAPY: 2 MONTHS AGO
  2. LISINOPRIL [Concomitant]
  3. XANAX [Concomitant]

REACTIONS (1)
  - PAIN [None]
